FAERS Safety Report 19269760 (Version 1)
Quarter: 2021Q2

REPORT INFORMATION
  Report Type: Report from Study
  Country: US (occurrence: US)
  Receive Date: 20210518
  Receipt Date: 20210518
  Transmission Date: 20210717
  Serious: Yes (Hospitalization)
  Sender: FDA-Public Use
  Company Number: US-VERTEX PHARMACEUTICALS-2021-004860

PATIENT
  Age: 8 Year
  Sex: Male

DRUGS (15)
  1. ORKAMBI [Suspect]
     Active Substance: IVACAFTOR\LUMACAFTOR
     Indication: CYSTIC FIBROSIS
     Dosage: 2 DOSAGE FORM, BID
     Route: 048
     Dates: start: 20200305
  2. FLONASE ALLERGY RELIEF [Concomitant]
     Active Substance: FLUTICASONE PROPIONATE
  3. MIRALAX [Concomitant]
     Active Substance: POLYETHYLENE GLYCOL 3350
  4. REMERON [Concomitant]
     Active Substance: MIRTAZAPINE
  5. SINGULAIR [Concomitant]
     Active Substance: MONTELUKAST SODIUM
  6. PULMOZYME [Concomitant]
     Active Substance: DORNASE ALFA
  7. TOBRAMYCIN. [Concomitant]
     Active Substance: TOBRAMYCIN
  8. KLONOPIN [Concomitant]
     Active Substance: CLONAZEPAM
  9. SODIUM CHLORIDE 0.9% [Concomitant]
     Active Substance: SODIUM CHLORIDE
     Dosage: 0.9% INJECTION
  10. ALBUTEROL [SALBUTAMOL] [Concomitant]
     Active Substance: ALBUTEROL
  11. AZITHROMYCIN ANHYDROUS. [Concomitant]
     Active Substance: AZITHROMYCIN ANHYDROUS
  12. CAYSTON [Concomitant]
     Active Substance: AZTREONAM
  13. SODIUM CHLORIDE. [Concomitant]
     Active Substance: SODIUM CHLORIDE
     Dosage: 7% NEB
  14. RISPERIDONE. [Concomitant]
     Active Substance: RISPERIDONE
  15. PREVACID [Concomitant]
     Active Substance: LANSOPRAZOLE
     Dosage: DR

REACTIONS (2)
  - Gastrointestinal disorder [Not Recovered/Not Resolved]
  - Abnormal faeces [Not Recovered/Not Resolved]

NARRATIVE: CASE EVENT DATE: 202104
